FAERS Safety Report 19487436 (Version 5)
Quarter: 2021Q4

REPORT INFORMATION
  Report Type: Report from Study
  Country: JP (occurrence: JP)
  Receive Date: 20210702
  Receipt Date: 20211021
  Transmission Date: 20220303
  Serious: Yes (Death, Other)
  Sender: FDA-Public Use
  Company Number: JP-BRISTOL-MYERS SQUIBB COMPANY-BMS-2021-063367

PATIENT
  Age: 77 Year
  Sex: Male
  Weight: 40.2 kg

DRUGS (2)
  1. NIVOLUMAB [Suspect]
     Active Substance: NIVOLUMAB
     Indication: Non-small cell lung cancer recurrent
     Dosage: 360 MILLIGRAM
     Route: 041
     Dates: start: 20210204, end: 20210204
  2. IPILIMUMAB [Suspect]
     Active Substance: IPILIMUMAB
     Indication: Non-small cell lung cancer recurrent
     Dosage: 40 MILLIGRAM
     Route: 041
     Dates: start: 20210204, end: 20210204

REACTIONS (7)
  - Malignant neoplasm progression [Fatal]
  - Delirium [Recovering/Resolving]
  - Pneumonia bacterial [Recovered/Resolved]
  - Immune-mediated enterocolitis [Unknown]
  - Pneumonia aspiration [Unknown]
  - Decreased appetite [Not Recovered/Not Resolved]
  - Malaise [Not Recovered/Not Resolved]

NARRATIVE: CASE EVENT DATE: 20210212
